FAERS Safety Report 12316928 (Version 1)
Quarter: 2016Q2

REPORT INFORMATION
  Report Type: Spontaneous
  Country: IT (occurrence: IT)
  Receive Date: 20160429
  Receipt Date: 20160429
  Transmission Date: 20160815
  Serious: Yes (Other)
  Sender: FDA-Public Use
  Company Number: IT-CIPLA LTD.-2016IT04231

PATIENT

DRUGS (3)
  1. GEMCITABINE [Suspect]
     Active Substance: GEMCITABINE\GEMCITABINE HYDROCHLORIDE
     Indication: PERIPHERAL T-CELL LYMPHOMA UNSPECIFIED
     Dosage: 800 MG/M2, ON DAYS 1 AND 15 FOR SIX 28-DAY CYCLES
     Route: 042
  2. ROMIDEPSIN [Suspect]
     Active Substance: ROMIDEPSIN
     Indication: PERIPHERAL T-CELL LYMPHOMA UNSPECIFIED
     Dosage: 12 MG/M2, ON DAYS 1, 8, AND 15 FOR SIX 28-DAY CYCLES
     Route: 042
  3. ROMIDEPSIN [Suspect]
     Active Substance: ROMIDEPSIN
     Dosage: 14 MG/M2, UNK
     Route: 042

REACTIONS (1)
  - Peripheral T-cell lymphoma unspecified recurrent [Unknown]
